FAERS Safety Report 7605763-X (Version None)
Quarter: 2011Q3

REPORT INFORMATION
  Report Type: 
  Country: None (occurrence: None)
  Receive Date: 20110705
  Receipt Date: 20110621
  Transmission Date: 20111222
  Serious: Yes (Other)
  Sender: FDA-Public Use
  Company Number: AUR-APL-2011-03095

PATIENT
  Sex: Female

DRUGS (4)
  1. AMBIEN CR [Concomitant]
  2. NEURONTIN [Concomitant]
  3. COZAAR [Concomitant]
  4. ZOLPIDEM [Suspect]
     Indication: INSOMNIA
     Dosage: GENERIC ZOLPIDEM FOR OVER 3 YEARS - NORTHSTAR BRAND ZOLPIDEM FOR 2 WEEKS (10 MG),ORAL
     Route: 048

REACTIONS (5)
  - ARTHRALGIA [None]
  - POOR QUALITY SLEEP [None]
  - PRODUCT SUBSTITUTION ISSUE [None]
  - ANXIETY [None]
  - JOINT SWELLING [None]
